FAERS Safety Report 8842863 (Version 2)
Quarter: 2012Q4

REPORT INFORMATION
  Report Type: Report from Study
  Country: US (occurrence: US)
  Receive Date: 20121016
  Receipt Date: 20121112
  Transmission Date: 20130627
  Serious: Yes (Hospitalization)
  Sender: FDA-Public Use
  Company Number: US-ACTELION-A-NJ2012-72532

PATIENT
  Age: 41 Year
  Sex: Female

DRUGS (2)
  1. VELETRI [Suspect]
     Indication: PULMONARY ARTERIAL HYPERTENSION
     Dosage: 19 ng/kg, per min
     Route: 041
     Dates: start: 20100805
  2. ADCIRCA [Concomitant]

REACTIONS (1)
  - Upper respiratory tract infection [Recovered/Resolved]
